FAERS Safety Report 7460973-X (Version None)
Quarter: 2011Q2

REPORT INFORMATION
  Report Type: 
  Country: None (occurrence: None)
  Receive Date: 20110505
  Receipt Date: 20110427
  Transmission Date: 20111010
  Serious: Yes (Death, Life-Threatening, Hospitalization, Other)
  Sender: FDA-Public Use
  Company Number: US-AMGEN-USASP2010005732

PATIENT
  Age: 45 Year
  Sex: Male

DRUGS (2)
  1. NPLATE [Suspect]
     Indication: THROMBOCYTOPENIA
     Dosage: 130 A?G, UNK
     Dates: start: 20100915, end: 20101111
  2. IMMUNOGLOBULINS [Concomitant]
     Dosage: UNK
     Dates: start: 20100831

REACTIONS (3)
  - KNEE OPERATION [None]
  - DEATH [None]
  - CARDIAC ARREST [None]
